FAERS Safety Report 9983188 (Version 3)
Quarter: 2014Q1

REPORT INFORMATION
  Report Type: Report from Study
  Country: DE (occurrence: DE)
  Receive Date: 20140307
  Receipt Date: 20140319
  Transmission Date: 20141002
  Serious: Yes (Death, Hospitalization)
  Sender: FDA-Public Use
  Company Number: PHHY2013DE140772

PATIENT
  Sex: Male
  Weight: 64 kg

DRUGS (2)
  1. ICL670A [Suspect]
     Indication: IRON OVERLOAD
     Dosage: 500 MG, DAILY
     Route: 048
     Dates: start: 20131104
  2. NIFEDIPINE [Concomitant]
     Indication: HYPERTENSION
     Dosage: 20 MG, DAILY
     Route: 048

REACTIONS (4)
  - Death [Fatal]
  - Fall [Recovered/Resolved]
  - Craniocerebral injury [Recovered/Resolved]
  - Pneumonia [Not Recovered/Not Resolved]
